FAERS Safety Report 13783530 (Version 2)
Quarter: 2017Q4

REPORT INFORMATION
  Report Type: Spontaneous
  Country: FR (occurrence: FR)
  Receive Date: 20170724
  Receipt Date: 20171012
  Transmission Date: 20180320
  Serious: Yes (Hospitalization, Other)
  Sender: FDA-Public Use
  Company Number: FR-SA-2016SA123984

PATIENT
  Sex: Female
  Weight: 71 kg

DRUGS (23)
  1. FAMPYRA [Concomitant]
     Active Substance: DALFAMPRIDINE
     Dosage: FAMPYRA 10, ONE TAB X 2/D
  2. DEXCHLORPHENIRAMINE [Concomitant]
     Active Substance: DEXCHLORPHENIRAMINE
     Indication: PREMEDICATION
     Dates: start: 20160607, end: 20160611
  3. CETIRIZINE [Concomitant]
     Active Substance: CETIRIZINE HYDROCHLORIDE
     Indication: PREMEDICATION
     Dates: start: 20160606, end: 20160611
  4. LANSOPRAZOLE. [Concomitant]
     Active Substance: LANSOPRAZOLE
     Route: 065
  5. PARACETAMOL [Concomitant]
     Active Substance: ACETAMINOPHEN
     Indication: PREMEDICATION
     Dosage: 500 MGX4
     Dates: start: 20160607, end: 20160611
  6. METHYLPREDNISOLONE. [Concomitant]
     Active Substance: METHYLPREDNISOLONE
     Indication: PREMEDICATION
     Dates: start: 20160609, end: 20160609
  7. LEMTRADA [Suspect]
     Active Substance: ALEMTUZUMAB
     Indication: MULTIPLE SCLEROSIS
     Route: 041
     Dates: start: 20170706
  8. ENDOXAN [Concomitant]
     Active Substance: CYCLOPHOSPHAMIDE
     Dates: start: 20151120
  9. VALACICLOVIR [Concomitant]
     Active Substance: VALACYCLOVIR HYDROCHLORIDE
     Indication: PREMEDICATION
     Dosage: 500X2/D FROM D1 TO D30
     Dates: start: 20160607, end: 20160706
  10. SOLU-MEDROL [Concomitant]
     Active Substance: METHYLPREDNISOLONE SODIUM SUCCINATE
     Route: 065
  11. DAFALGAN CODEINE [Concomitant]
     Active Substance: ACETAMINOPHEN\CODEINE PHOSPHATE
     Dosage: ONE TAB X 2/D
  12. METHYLPREDNISOLONE. [Concomitant]
     Active Substance: METHYLPREDNISOLONE
     Indication: PREMEDICATION
     Dates: start: 20160611, end: 20160611
  13. LEMTRADA [Suspect]
     Active Substance: ALEMTUZUMAB
     Indication: MULTIPLE SCLEROSIS
     Route: 041
     Dates: start: 20170613, end: 20170613
  14. METHYLPREDNISOLONE. [Concomitant]
     Active Substance: METHYLPREDNISOLONE
     Indication: PREMEDICATION
     Dates: start: 20160610, end: 20160610
  15. RANITIDINE. [Concomitant]
     Active Substance: RANITIDINE
     Indication: PREMEDICATION
     Dosage: 150 MG X2
     Dates: start: 20160606, end: 20160611
  16. ACICLOVIR [Concomitant]
     Active Substance: ACYCLOVIR
     Route: 065
  17. LEMTRADA [Suspect]
     Active Substance: ALEMTUZUMAB
     Indication: MULTIPLE SCLEROSIS
     Route: 042
     Dates: start: 20160607, end: 20160611
  18. POLARAMINE [Concomitant]
     Active Substance: DEXCHLORPHENIRAMINE MALEATE
     Route: 065
  19. ZOLPIDEM [Concomitant]
     Active Substance: ZOLPIDEM\ZOLPIDEM TARTRATE
     Route: 065
  20. BACLOFEN. [Concomitant]
     Active Substance: BACLOFEN
     Dosage: 2 TAB X 3/D
  21. LYRICA [Concomitant]
     Active Substance: PREGABALIN
     Dosage: 2 CAPSULES X 3/D
  22. METHYLPREDNISOLONE. [Concomitant]
     Active Substance: METHYLPREDNISOLONE
     Indication: PREMEDICATION
     Dates: start: 20160607, end: 20160608
  23. LOVENOX [Concomitant]
     Active Substance: ENOXAPARIN SODIUM
     Route: 065

REACTIONS (14)
  - Procalcitonin increased [Recovered/Resolved]
  - C-reactive protein increased [Recovered/Resolved]
  - Hyperleukocytosis [Recovered/Resolved]
  - Bradycardia [Recovered/Resolved]
  - Pyrexia [Recovered/Resolved]
  - Bradycardia [Recovering/Resolving]
  - Tachycardia [Recovered/Resolved]
  - Band neutrophil count increased [Recovered/Resolved]
  - CSF protein increased [Unknown]
  - Rash [Recovered/Resolved]
  - Headache [Recovered/Resolved]
  - Infusion related reaction [Recovering/Resolving]
  - Infusion related reaction [Recovered/Resolved]
  - Pyrexia [Recovered/Resolved]

NARRATIVE: CASE EVENT DATE: 20160607
